FAERS Safety Report 9871715 (Version 1)
Quarter: 2014Q1

REPORT INFORMATION
  Report Type: Spontaneous
  Country: US (occurrence: US)
  Receive Date: 20140205
  Receipt Date: 20140205
  Transmission Date: 20141002
  Serious: No
  Sender: FDA-Public Use
  Company Number: US-AMGEN-USASP2013021569

PATIENT
  Age: 75 Year
  Sex: Male

DRUGS (2)
  1. NEULASTA [Suspect]
     Indication: PRODUCT USED FOR UNKNOWN INDICATION
     Dosage: UNK
  2. GEMCITABINE [Concomitant]
     Indication: NON-SMALL CELL LUNG CANCER
     Dosage: UNK UNK, Q2WK

REACTIONS (2)
  - Pain [Unknown]
  - Hyperthermia [Unknown]
